FAERS Safety Report 22263963 (Version 1)
Quarter: 2023Q2

REPORT INFORMATION
  Report Type: Spontaneous
  Country: US (occurrence: US)
  Receive Date: 20230428
  Receipt Date: 20230428
  Transmission Date: 20230722
  Serious: Yes (Other)
  Sender: FDA-Public Use
  Company Number: US-drreddys-SPO/USA/23/0164255

PATIENT
  Age: 24 Year
  Sex: Female

DRUGS (3)
  1. ACCUTANE [Suspect]
     Active Substance: ISOTRETINOIN
     Indication: Acne
     Dosage: RMA ISSUE DATE: 30 AUGUST 202210:42:04 AM, 29 SEPTEMBER 2022 02:41:29 PM, 07 NOVEMBER 2022 03:05:48
  2. ACCUTANE [Suspect]
     Active Substance: ISOTRETINOIN
     Dosage: RMA ISSUE DATE: 16 FEBRUARY 2023 04:29:37 PM
  3. ACCUTANE [Suspect]
     Active Substance: ISOTRETINOIN
     Dosage: RMA ISSUE DATE: 15 MARCH 2023 05:38:52 PM

REACTIONS (1)
  - Panic attack [Unknown]
